FAERS Safety Report 5904187-0 (Version None)
Quarter: 2008Q4

REPORT INFORMATION
  Report Type: 
  Country: None (occurrence: None)
  Receive Date: 20081001
  Receipt Date: 20080925
  Transmission Date: 20090506
  Serious: Yes (Hospitalization)
  Sender: FDA-Public Use
  Company Number: DE-TEVA-178006ISR

PATIENT
  Sex: Female

DRUGS (9)
  1. FLUOROURACIL [Suspect]
     Indication: COLORECTAL CANCER METASTATIC
     Route: 041
     Dates: start: 20080627
  2. FLUOROURACIL [Suspect]
     Route: 040
     Dates: start: 20080627
  3. LEUCOVORIN CALCIUM [Suspect]
     Indication: COLORECTAL CANCER METASTATIC
     Route: 042
     Dates: start: 20080627
  4. IRINOTECAN HCL [Suspect]
     Indication: COLORECTAL CANCER METASTATIC
     Route: 042
     Dates: start: 20080627
  5. CETUXIMAB [Suspect]
     Indication: COLORECTAL CANCER METASTATIC
     Route: 042
     Dates: start: 20080627
  6. LOPERAMIDE HYDROCHLORIDE [Concomitant]
     Route: 048
  7. PANTOPRAZOLE SODIUM [Concomitant]
     Route: 048
  8. LEVOTHYROXINE SODIUM [Concomitant]
     Route: 048
  9. ACETYLSALICYLIC ACID SRT [Concomitant]
     Route: 048

REACTIONS (1)
  - ILEUS [None]
